FAERS Safety Report 19749341 (Version 2)
Quarter: 2025Q3

REPORT INFORMATION
  Report Type: Spontaneous
  Country: JP (occurrence: JP)
  Receive Date: 20210826
  Receipt Date: 20250923
  Transmission Date: 20251020
  Serious: Yes (Other)
  Sender: MACLEODS
  Company Number: None

PATIENT

DRUGS (3)
  1. LEVOFLOXACIN [Suspect]
     Active Substance: LEVOFLOXACIN
     Indication: Urinary tract infection
     Route: 065
  2. CIPROFLOXACIN [Suspect]
     Active Substance: CIPROFLOXACIN
     Indication: Urinary tract infection
     Route: 065
  3. ACETAMINOPHEN [Suspect]
     Active Substance: ACETAMINOPHEN
     Indication: Urinary tract infection
     Route: 065

REACTIONS (9)
  - Skin abrasion [Recovered/Resolved]
  - Dermatitis [Recovered/Resolved]
  - Erythema [Recovered/Resolved]
  - Skin erosion [Recovered/Resolved]
  - Lip erosion [Recovered/Resolved]
  - Oral mucosa erosion [Recovered/Resolved]
  - Nikolsky^s sign positive [Recovered/Resolved]
  - Epidermal necrosis [Recovered/Resolved]
  - Vulvar erosion [Recovered/Resolved]
